FAERS Safety Report 14109770 (Version 1)
Quarter: 2017Q4

REPORT INFORMATION
  Report Type: Spontaneous
  Country: CZ (occurrence: CZ)
  Receive Date: 20171020
  Receipt Date: 20171020
  Transmission Date: 20180321
  Serious: Yes (Other)
  Sender: FDA-Public Use
  Company Number: CZ-ROCHE-2009429

PATIENT
  Sex: Male

DRUGS (3)
  1. ACTILYSE [Suspect]
     Active Substance: ALTEPLASE
     Indication: PNEUMONIA PNEUMOCOCCAL
  2. ACTILYSE [Suspect]
     Active Substance: ALTEPLASE
     Indication: EMPYEMA
  3. ACTILYSE [Suspect]
     Active Substance: ALTEPLASE
     Indication: FIBRINOLYSIS
     Route: 013
     Dates: start: 201610, end: 201610

REACTIONS (3)
  - Haemothorax [Unknown]
  - Intentional product use issue [Unknown]
  - Off label use [Unknown]

NARRATIVE: CASE EVENT DATE: 201610
